FAERS Safety Report 4380625-2 (Version None)
Quarter: 2004Q2

REPORT INFORMATION
  Report Type: 
  Country: None (occurrence: None)
  Receive Date: 20040610
  Receipt Date: 20040309
  Transmission Date: 20050107
  Serious: Yes (Other)
  Sender: FDA-Public Use
  Company Number: A03200400727

PATIENT
  Age: 55 Year
  Sex: Male
  Weight: 80.9 kg

DRUGS (19)
  1. ELOXATIN [Suspect]
     Indication: COLORECTAL CANCER STAGE III
     Dosage: 170 MG OTHER - INTRAVENOUS NOS
     Route: 042
     Dates: start: 20040213, end: 20040213
  2. FLUOROURACIL [Concomitant]
  3. LEUCOVORIN [Concomitant]
  4. ONDANSETRON HCL [Concomitant]
  5. DEXAMETHASONE [Concomitant]
  6. CIMETIDINE [Concomitant]
  7. WARFARIN SODIUM [Concomitant]
  8. ARTEMISININ [Concomitant]
  9. GLUCOSAMINE [Concomitant]
  10. LACTOBACILLUS ACIDOPHILUS [Concomitant]
  11. POLYERGA [Concomitant]
  12. ACETYLCARNITINE [Concomitant]
  13. CARNITINE [Concomitant]
  14. IMMUNE ASSIST [Concomitant]
  15. ALPHA LIPOIC [Concomitant]
  16. ALPHA HYDROXY ACID [Concomitant]
  17. GLUTAMINE [Concomitant]
  18. VITAMIN C [Concomitant]
  19. GLUCOSE OXIDASE [Concomitant]

REACTIONS (7)
  - ABDOMINAL PAIN [None]
  - HEADACHE [None]
  - HEPATIC ENZYME INCREASED [None]
  - JAUNDICE [None]
  - ORAL PAIN [None]
  - PRURITUS [None]
  - RASH FOLLICULAR [None]
